FAERS Safety Report 9975998 (Version 1)
Quarter: 2014Q1

REPORT INFORMATION
  Report Type: Spontaneous
  Country: US (occurrence: US)
  Receive Date: 20140306
  Receipt Date: 20140306
  Transmission Date: 20141002
  Serious: No
  Sender: FDA-Public Use
  Company Number: US-PFIZER INC-2014063767

PATIENT
  Age: 70 Year
  Sex: Female
  Weight: 68.03 kg

DRUGS (1)
  1. CELEBREX [Suspect]
     Indication: ARTHRITIS
     Dosage: 200 MG, UNK
     Route: 048
     Dates: start: 201402, end: 201402

REACTIONS (1)
  - Pain in extremity [Unknown]
